FAERS Safety Report 6972183-0 (Version None)
Quarter: 2010Q3

REPORT INFORMATION
  Report Type: 
  Country: None (occurrence: None)
  Receive Date: 20100909
  Receipt Date: 20100830
  Transmission Date: 20110219
  Serious: No
  Sender: FDA-Public Use
  Company Number: US-BIOGENIDEC-2010BI029966

PATIENT
  Age: 36 Year
  Sex: Male

DRUGS (6)
  1. AVONEX [Suspect]
     Indication: MULTIPLE SCLEROSIS
     Route: 030
  2. AVONEX [Suspect]
     Route: 030
     Dates: start: 20060901, end: 20070101
  3. AVONEX [Suspect]
     Route: 030
     Dates: start: 20070101, end: 20070101
  4. AVONEX [Suspect]
     Route: 030
     Dates: start: 20070101, end: 20090101
  5. AVONEX [Suspect]
     Route: 030
     Dates: start: 20090101, end: 20100301
  6. AVONEX [Suspect]
     Route: 030
     Dates: start: 20100301

REACTIONS (7)
  - ASTHENIA [None]
  - BALANCE DISORDER [None]
  - FATIGUE [None]
  - HYPOAESTHESIA [None]
  - MUSCLE SPASMS [None]
  - MUSCULAR WEAKNESS [None]
  - OPTIC NEURITIS [None]
